FAERS Safety Report 8302943-5 (Version None)
Quarter: 2012Q2

REPORT INFORMATION
  Report Type: 
  Country: None (occurrence: None)
  Receive Date: 20120420
  Receipt Date: 20120417
  Transmission Date: 20120825
  Serious: Yes (Other)
  Sender: FDA-Public Use
  Company Number: FR-AMGEN-FRASP2012022815

PATIENT

DRUGS (2)
  1. ANTINEOPLASTIC AGENTS [Concomitant]
  2. NEULASTA [Suspect]
     Indication: CHEMOTHERAPY
     Dosage: UNK

REACTIONS (1)
  - FEBRILE BONE MARROW APLASIA [None]
